FAERS Safety Report 11177936 (Version 1)
Quarter: 2015Q2

REPORT INFORMATION
  Report Type: Spontaneous
  Country: US (occurrence: None)
  Receive Date: 20150609
  Receipt Date: 20150609
  Transmission Date: 20150821
  Serious: No
  Sender: FDA-Public Use
  Company Number: None

PATIENT
  Age: 32 Year
  Sex: Male
  Weight: 83.92 kg

DRUGS (1)
  1. HUMALOG [Suspect]
     Active Substance: INSULIN LISPRO
     Indication: TYPE 1 DIABETES MELLITUS
     Dosage: INJECT 100UNITS DAILY VIA PUMP BASAL AND BOLUS INSULIN PUMP
     Dates: start: 20150524, end: 20150608

REACTIONS (6)
  - Liquid product physical issue [None]
  - Drug dose omission [None]
  - Incorrect product storage [None]
  - Product physical consistency issue [None]
  - Device occlusion [None]
  - Blood glucose increased [None]

NARRATIVE: CASE EVENT DATE: 20150607
